FAERS Safety Report 9346852 (Version 2)
Quarter: 2013Q2

REPORT INFORMATION
  Report Type: Spontaneous
  Country: GB (occurrence: GB)
  Receive Date: 20130613
  Receipt Date: 20130613
  Transmission Date: 20140414
  Serious: Yes (Disabling)
  Sender: FDA-Public Use
  Company Number: GB-009507513-1303GBR002015

PATIENT
  Age: 62 Year
  Sex: Female
  Weight: 68.5 kg

DRUGS (8)
  1. SINEMET [Suspect]
     Indication: ON AND OFF PHENOMENON
     Dosage: ONE TABLE TDS
     Route: 048
     Dates: start: 2008, end: 201303
  2. SINEMET [Suspect]
     Dosage: ONE TABLE TDS
     Route: 048
     Dates: start: 201303, end: 2013
  3. HALF SINEMET CR [Suspect]
     Dosage: 1 TABLET AT NIGTH
     Route: 048
  4. HALF SINEMET CR [Suspect]
     Dosage: 2 TABLETS AT NIGTH
     Route: 048
  5. ROPINIROLE [Concomitant]
     Dosage: 24 MG OM
     Route: 048
  6. ROPINIROLE [Concomitant]
     Dosage: 20 MG, QD
     Route: 048
  7. ENTACAPONE [Concomitant]
     Dosage: 200 MG TDS
  8. RASAGILINE [Concomitant]
     Dosage: 1 MG OM
     Route: 048

REACTIONS (8)
  - Parkinson^s disease [Unknown]
  - Therapeutic response decreased [Unknown]
  - Fall [Unknown]
  - Drug effect delayed [Unknown]
  - Back pain [Unknown]
  - Movement disorder [Unknown]
  - Adverse event [Unknown]
  - Spinal osteoarthritis [Unknown]
